FAERS Safety Report 4875733-3 (Version None)
Quarter: 2006Q1

REPORT INFORMATION
  Report Type: 
  Country: None (occurrence: None)
  Receive Date: 20060105
  Receipt Date: 20060103
  Transmission Date: 20060701
  Serious: Yes (Hospitalization, Other)
  Sender: FDA-Public Use
  Company Number: THQ2005A01110

PATIENT
  Age: 8 Year
  Sex: Female

DRUGS (1)
  1. LEUPROLIDE ACETATE [Suspect]
     Indication: PRECOCIOUS PUBERTY
     Dosage: 3.75 MG (3.75 MG, 1 IN 1 M)

REACTIONS (11)
  - ADNEXA UTERI MASS [None]
  - ALBRIGHT'S DISEASE [None]
  - AMENORRHOEA [None]
  - CAFE AU LAIT SPOTS [None]
  - HISTOLOGY ABNORMAL [None]
  - MENSTRUATION IRREGULAR [None]
  - OVARIAN CYST [None]
  - OVARIAN ENLARGEMENT [None]
  - OVARIAN NECROSIS [None]
  - OVARIAN TORSION [None]
  - UTERINE HAEMORRHAGE [None]
